FAERS Safety Report 10498069 (Version 1)
Quarter: 2014Q4

REPORT INFORMATION
  Report Type: Spontaneous
  Country: SG (occurrence: SG)
  Receive Date: 20141006
  Receipt Date: 20141006
  Transmission Date: 20150528
  Serious: Yes (Other)
  Sender: FDA-Public Use
  Company Number: SG-ASTRAZENECA-2014SE72853

PATIENT
  Age: 64 Year
  Sex: Female

DRUGS (3)
  1. ROPIVACAINE [Suspect]
     Active Substance: ROPIVACAINE
     Indication: LOCAL ANAESTHESIA
     Dosage: ADRENALINE 1:400,000 (I. E. TOTAL 50MCG)
     Route: 053
  2. ADRENALIN [Suspect]
     Active Substance: EPINEPHRINE
     Indication: LOCAL ANAESTHESIA
     Dosage: ADRENALINE 1:400,000 (I. E. TOTAL 50MCG)
     Route: 053
  3. LIGNOCAINE [Suspect]
     Active Substance: LIDOCAINE HYDROCHLORIDE
     Indication: LOCAL ANAESTHESIA
     Dosage: ADRENALINE 1:400,000 (I. E. TOTAL 50MCG)
     Route: 053

REACTIONS (1)
  - Atrial fibrillation [Recovered/Resolved]
